FAERS Safety Report 4389079-3 (Version None)
Quarter: 2004Q3

REPORT INFORMATION
  Report Type: 
  Country: None (occurrence: None)
  Receive Date: 20040702
  Receipt Date: 20040625
  Transmission Date: 20050211
  Serious: Yes (Hospitalization)
  Sender: FDA-Public Use
  Company Number: 200416423GDDC

PATIENT
  Age: 83 Year
  Sex: Female

DRUGS (7)
  1. FLUDEX [Suspect]
     Indication: ESSENTIAL HYPERTENSION
     Route: 048
     Dates: end: 20040229
  2. LIPANTHYL ^THISSEN^ [Concomitant]
     Dosage: DOSE: UNK
  3. IMOVANE [Concomitant]
     Dosage: DOSE: UNK
  4. PROZAC [Concomitant]
     Dosage: DOSE: UNK
  5. LEXOMIL [Concomitant]
     Dosage: DOSE: UNK
  6. TRANSIPEG [Concomitant]
     Dosage: DOSE: UNK
  7. DEXTROPROPOXYPHENE/ PARACETAMOL [Concomitant]
     Dosage: DOSE: UNK

REACTIONS (7)
  - ELECTROCARDIOGRAM REPOLARISATION ABNORMALITY [None]
  - EYE INJURY [None]
  - FALL [None]
  - FRACTURE [None]
  - HYPOKALAEMIA [None]
  - MALAISE [None]
  - TRAUMATIC BRAIN INJURY [None]
